FAERS Safety Report 12434163 (Version 3)
Quarter: 2016Q3

REPORT INFORMATION
  Report Type: Spontaneous
  Country: US (occurrence: US)
  Receive Date: 20160603
  Receipt Date: 20160701
  Transmission Date: 20161109
  Serious: Yes (Hospitalization)
  Sender: FDA-Public Use
  Company Number: US-UNITED THERAPEUTICS-UNT-2016-008281

PATIENT
  Age: 65 Year
  Sex: Female
  Weight: 57.14 kg

DRUGS (3)
  1. ORENITRAM [Suspect]
     Active Substance: TREPROSTINIL
     Dosage: UNK
  2. ORENITRAM [Suspect]
     Active Substance: TREPROSTINIL
     Indication: PULMONARY ARTERIAL HYPERTENSION
     Dosage: 2 MG, TID
     Route: 048
     Dates: start: 20150511
  3. LETAIRIS [Concomitant]
     Active Substance: AMBRISENTAN
     Indication: PRODUCT USED FOR UNKNOWN INDICATION

REACTIONS (13)
  - Musculoskeletal pain [Unknown]
  - Pneumonia [Unknown]
  - Back pain [Unknown]
  - Constipation [Unknown]
  - Frequent bowel movements [Unknown]
  - Heart rate decreased [Unknown]
  - Depression [Unknown]
  - Epistaxis [Unknown]
  - Hypotension [Unknown]
  - Musculoskeletal chest pain [Unknown]
  - Cough [Unknown]
  - Dyspnoea [Unknown]
  - Neck pain [Unknown]

NARRATIVE: CASE EVENT DATE: 201605
